FAERS Safety Report 10249242 (Version 2)
Quarter: 2015Q3

REPORT INFORMATION
  Report Type: Spontaneous
  Country: US (occurrence: US)
  Receive Date: 20140620
  Receipt Date: 20150719
  Transmission Date: 20151125
  Serious: Yes (Hospitalization, Other)
  Sender: FDA-Public Use
  Company Number: US-SA-2014SA077781

PATIENT
  Age: 62 Year
  Sex: Female

DRUGS (4)
  1. PLAVIX [Suspect]
     Active Substance: CLOPIDOGREL BISULFATE
     Indication: CARDIAC FAILURE CONGESTIVE
     Route: 048
     Dates: start: 200404, end: 200611
  2. PLAVIX [Suspect]
     Active Substance: CLOPIDOGREL BISULFATE
     Indication: PERIPHERAL ARTERIAL OCCLUSIVE DISEASE
     Route: 048
     Dates: start: 200404, end: 200611
  3. ASPIRIN. [Concomitant]
     Active Substance: ASPIRIN
     Dates: start: 2002
  4. ASPIRIN. [Concomitant]
     Active Substance: ASPIRIN
     Dates: start: 200404, end: 200611

REACTIONS (3)
  - Ulcer haemorrhage [Unknown]
  - Gastrointestinal haemorrhage [Recovered/Resolved]
  - Multiple injuries [Unknown]

NARRATIVE: CASE EVENT DATE: 20061121
